FAERS Safety Report 16115181 (Version 1)
Quarter: 2019Q1

REPORT INFORMATION
  Report Type: Spontaneous
  Country: US (occurrence: US)
  Receive Date: 20190325
  Receipt Date: 20190325
  Transmission Date: 20190418
  Serious: Yes (Hospitalization)
  Sender: FDA-Public Use
  Company Number: US-GLAXOSMITHKLINE-US2019052610

PATIENT
  Age: 81 Year
  Sex: Female

DRUGS (2)
  1. INCRUSE ELLIPTA [Suspect]
     Active Substance: UMECLIDINIUM BROMIDE
     Indication: PRODUCT USED FOR UNKNOWN INDICATION
     Dosage: 1 PUFF(S), QD
  2. SYMBICORT [Concomitant]
     Active Substance: BUDESONIDE\FORMOTEROL FUMARATE DIHYDRATE

REACTIONS (9)
  - Blood glucose increased [Unknown]
  - Visual impairment [Unknown]
  - Dyspnoea [Unknown]
  - Balance disorder [Unknown]
  - Eye operation [Unknown]
  - Ill-defined disorder [Unknown]
  - Pain in extremity [Unknown]
  - Intentional dose omission [Unknown]
  - Affective disorder [Unknown]

NARRATIVE: CASE EVENT DATE: 20190321
